FAERS Safety Report 23150882 (Version 1)
Quarter: 2023Q4

REPORT INFORMATION
  Report Type: Spontaneous
  Country: PL (occurrence: PL)
  Receive Date: 20231106
  Receipt Date: 20231106
  Transmission Date: 20240110
  Serious: Yes (Death, Life-Threatening, Hospitalization, Other)
  Sender: FDA-Public Use
  Company Number: PL-PFIZER INC-PV202300179649

PATIENT
  Age: 71 Year
  Sex: Male

DRUGS (6)
  1. IDARUBICIN HYDROCHLORIDE [Suspect]
     Active Substance: IDARUBICIN HYDROCHLORIDE
     Indication: Blast crisis in myelogenous leukaemia
     Dosage: 10 MG/M2, CYCLIC
  2. IDARUBICIN HYDROCHLORIDE [Suspect]
     Active Substance: IDARUBICIN HYDROCHLORIDE
     Indication: Chronic myeloid leukaemia
  3. CYTARABINE [Suspect]
     Active Substance: CYTARABINE
     Indication: Blast crisis in myelogenous leukaemia
     Dosage: 2G/M2 CYCLIC
  4. CYTARABINE [Suspect]
     Active Substance: CYTARABINE
     Indication: Chronic myeloid leukaemia
  5. FLUDARABINE [Suspect]
     Active Substance: FLUDARABINE PHOSPHATE
     Indication: Chronic myeloid leukaemia
     Dosage: 30 MG/M2, CYCLIC
  6. FLUDARABINE [Suspect]
     Active Substance: FLUDARABINE PHOSPHATE
     Indication: Blast crisis in myelogenous leukaemia

REACTIONS (3)
  - Neutropenia [Fatal]
  - Respiratory tract infection [Fatal]
  - Cardiopulmonary failure [Fatal]
